FAERS Safety Report 13508847 (Version 3)
Quarter: 2019Q1

REPORT INFORMATION
  Report Type: Report from Study
  Country: JP (occurrence: JP)
  Receive Date: 20170503
  Receipt Date: 20190102
  Transmission Date: 20190417
  Serious: Yes (Other)
  Sender: FDA-Public Use
  Company Number: JP-INCYTE CORPORATION-2016IN003754

PATIENT

DRUGS (34)
  1. JAKAVI [Suspect]
     Active Substance: RUXOLITINIB
     Dosage: 5 MG, QD
     Route: 048
     Dates: start: 20170719, end: 20170729
  2. HYDREA [Concomitant]
     Active Substance: HYDROXYUREA
     Indication: MYELOPROLIFERATIVE NEOPLASM
     Dosage: 750 MG, UNK
     Route: 048
     Dates: start: 20160405, end: 20160711
  3. HYDREA [Concomitant]
     Active Substance: HYDROXYUREA
     Dosage: 250 MG, UNK
     Route: 048
     Dates: start: 20160712, end: 20160726
  4. HYDREA [Concomitant]
     Active Substance: HYDROXYUREA
     Dosage: 250 MG, UNK
     Route: 048
     Dates: start: 20171028, end: 20171107
  5. ALKERAN [Concomitant]
     Active Substance: MELPHALAN
     Indication: MYELODYSPLASTIC SYNDROME
     Dosage: 2 MG, UNK
     Route: 048
     Dates: start: 20170725, end: 20170820
  6. JAKAVI [Suspect]
     Active Substance: RUXOLITINIB
     Dosage: 5 MG, BID
     Route: 048
     Dates: start: 20170418, end: 20170522
  7. JAKAVI [Suspect]
     Active Substance: RUXOLITINIB
     Indication: MYELODYSPLASTIC SYNDROME
     Dosage: 5 MG, BID
     Route: 048
     Dates: start: 20151006, end: 20151021
  8. JAKAVI [Suspect]
     Active Substance: RUXOLITINIB
     Dosage: 3.75 MG, BID
     Route: 048
     Dates: start: 20170322, end: 20170417
  9. HYDREA [Concomitant]
     Active Substance: HYDROXYUREA
     Dosage: 500 MG, UNK
     Route: 048
     Dates: start: 20160816, end: 20170619
  10. HYDREA [Concomitant]
     Active Substance: HYDROXYUREA
     Dosage: 500 MG, UNK
     Route: 048
     Dates: start: 20171023, end: 20171027
  11. ALKERAN [Concomitant]
     Active Substance: MELPHALAN
     Indication: MYELOPROLIFERATIVE NEOPLASM
  12. BONZOL [Concomitant]
     Active Substance: LANSOPRAZOLE
     Indication: MYELOPROLIFERATIVE NEOPLASM
     Dosage: 400 MG, UNK
     Route: 048
     Dates: start: 20180403, end: 20180502
  13. JAKAVI [Suspect]
     Active Substance: RUXOLITINIB
     Dosage: 3.75 MG, BID
     Route: 048
     Dates: start: 20151208, end: 20160104
  14. JAKAVI [Suspect]
     Active Substance: RUXOLITINIB
     Dosage: 5 MG, QD
     Route: 048
     Dates: start: 20171012, end: 20171128
  15. JAKAVI [Suspect]
     Active Substance: RUXOLITINIB
     Dosage: 5 MG, QOD
     Route: 048
     Dates: start: 20171220, end: 20171221
  16. JAKAVI [Suspect]
     Active Substance: RUXOLITINIB
     Dosage: 5 MG, QOD
     Route: 048
     Dates: start: 20180116, end: 20180313
  17. HYDREA [Concomitant]
     Active Substance: HYDROXYUREA
     Dosage: 1000 MG, UNK
     Route: 048
     Dates: start: 20171005, end: 20171022
  18. REVLIMID [Concomitant]
     Active Substance: LENALIDOMIDE
     Indication: MYELODYSPLASTIC SYNDROME
     Dosage: 5 MG, UNK
     Route: 048
     Dates: start: 20170823, end: 20170930
  19. REVLIMID [Concomitant]
     Active Substance: LENALIDOMIDE
     Indication: MYELOPROLIFERATIVE NEOPLASM
  20. JAKAVI [Suspect]
     Active Substance: RUXOLITINIB
     Indication: MYELOPROLIFERATIVE NEOPLASM
     Dosage: 5 MG, QD
     Route: 048
     Dates: start: 20151023, end: 20151207
  21. JAKAVI [Suspect]
     Active Substance: RUXOLITINIB
     Dosage: 6.25 MG, UNK
     Route: 048
     Dates: start: 20170523, end: 20170605
  22. JAKAVI [Suspect]
     Active Substance: RUXOLITINIB
     Dosage: 5 MG, BID
     Route: 048
     Dates: start: 20170606, end: 20170718
  23. PRIMOBOLAN-DEPOT [Concomitant]
     Active Substance: METHENOLONE ENANTHATE
     Indication: MYELODYSPLASTIC SYNDROME
     Dosage: 15 MG, UNK
     Route: 048
     Dates: start: 20170713, end: 20170823
  24. PRIMOBOLAN-DEPOT [Concomitant]
     Active Substance: METHENOLONE ENANTHATE
     Indication: MYELOPROLIFERATIVE NEOPLASM
  25. BONZOL [Concomitant]
     Active Substance: LANSOPRAZOLE
     Indication: MYELODYSPLASTIC SYNDROME
     Dosage: 200 MG, UNK
     Route: 048
     Dates: start: 20180207, end: 20180402
  26. JAKAVI [Suspect]
     Active Substance: RUXOLITINIB
     Dosage: 5 MG, BID
     Route: 048
     Dates: start: 20150105, end: 20160815
  27. JAKAVI [Suspect]
     Active Substance: RUXOLITINIB
     Dosage: 5 MG, BID
     Route: 048
     Dates: start: 20171129, end: 20171219
  28. HYDREA [Concomitant]
     Active Substance: HYDROXYUREA
     Indication: MYELODYSPLASTIC SYNDROME
     Dosage: 500 MG, UNK
     Route: 048
     Dates: start: 20160119, end: 20160304
  29. HYDREA [Concomitant]
     Active Substance: HYDROXYUREA
     Dosage: 250 MG, UNK
     Route: 048
     Dates: start: 20170620, end: 20170713
  30. HYDREA [Concomitant]
     Active Substance: HYDROXYUREA
     Dosage: 500 MG, UNK
     Route: 048
     Dates: start: 20170930, end: 20171004
  31. JAKAVI [Suspect]
     Active Substance: RUXOLITINIB
     Dosage: 5 MG, QD
     Route: 048
     Dates: start: 20160816, end: 20170321
  32. JAKAVI [Suspect]
     Active Substance: RUXOLITINIB
     Dosage: 5 MG, QD
     Route: 048
     Dates: start: 20171222, end: 20180115
  33. PREDONINE [Concomitant]
     Active Substance: PREDNISOLONE
     Indication: MYELODYSPLASTIC SYNDROME
     Dosage: 10 MG, UNK
     Route: 048
     Dates: start: 20170729, end: 20171004
  34. PREDONINE [Concomitant]
     Active Substance: PREDNISOLONE
     Indication: MYELOPROLIFERATIVE NEOPLASM
     Dosage: 5 MG, UNK
     Route: 048
     Dates: start: 20171005

REACTIONS (6)
  - Full blood count decreased [Not Recovered/Not Resolved]
  - Myelodysplastic syndrome [Not Recovered/Not Resolved]
  - Product use in unapproved indication [Unknown]
  - Platelet count decreased [Recovering/Resolving]
  - Myeloproliferative neoplasm [Not Recovered/Not Resolved]
  - Anaemia [Recovering/Resolving]

NARRATIVE: CASE EVENT DATE: 20151021
